FAERS Safety Report 7728422-1 (Version None)
Quarter: 2011Q3

REPORT INFORMATION
  Report Type: 
  Country: None (occurrence: None)
  Receive Date: 20110905
  Receipt Date: 20110830
  Transmission Date: 20111222
  Serious: Yes (Life-Threatening, Hospitalization)
  Sender: FDA-Public Use
  Company Number: FR-BRISTOL-MYERS SQUIBB COMPANY-16020208

PATIENT
  Age: 87 Year
  Sex: Male

DRUGS (2)
  1. COUMADIN [Suspect]
     Route: 048
     Dates: start: 20110610, end: 20110630
  2. AMLODIPINE BESYLATE [Suspect]
     Route: 048
     Dates: start: 20110610

REACTIONS (5)
  - GASTRIC ULCER [None]
  - MELAENA [None]
  - HAEMOGLOBIN DECREASED [None]
  - GASTRITIS [None]
  - INTERNATIONAL NORMALISED RATIO INCREASED [None]
